FAERS Safety Report 11402666 (Version 1)
Quarter: 2015Q3

REPORT INFORMATION
  Report Type: Spontaneous
  Country: US (occurrence: None)
  Receive Date: 20150812
  Receipt Date: 20150812
  Transmission Date: 20151125
  Serious: No
  Sender: FDA-Public Use
  Company Number: 1505USA005191

PATIENT
  Age: 24 Year
  Sex: Female

DRUGS (1)
  1. RAGWITEK [Suspect]
     Active Substance: AMBROSIA ARTEMISIIFOLIA POLLEN
     Indication: SEASONAL ALLERGY
     Dosage: 12 AMB ONCE DAILY (STRENGHT: 12 AMB A1-U), SUBLINGUAL
     Route: 060
     Dates: start: 20150506, end: 201505

REACTIONS (5)
  - Throat tightness [None]
  - Stomatitis [None]
  - Dyspepsia [None]
  - Oral disorder [None]
  - Oral pain [None]

NARRATIVE: CASE EVENT DATE: 20150506
